FAERS Safety Report 7542630-4 (Version None)
Quarter: 2011Q2

REPORT INFORMATION
  Report Type: 
  Country: None (occurrence: None)
  Receive Date: 20110613
  Receipt Date: 20110603
  Transmission Date: 20111010
  Serious: Yes (Other)
  Sender: FDA-Public Use
  Company Number: PHHY2011IL50935

PATIENT

DRUGS (5)
  1. OLANZAPINE [Suspect]
     Dosage: UNK UKN, UNK
     Route: 064
  2. PAROXETINE HCL [Suspect]
     Dosage: UNK UKN, UNK
     Route: 064
  3. CLOPIXOL [Suspect]
     Dosage: UNK UKN, UNK
     Route: 064
  4. LITHIUM [Suspect]
     Dosage: UNK UKN, UNK
     Route: 064
  5. ACETAMINOPHEN [Suspect]
     Dosage: UNK UKN, UNK
     Route: 064

REACTIONS (5)
  - FEEDING DISORDER NEONATAL [None]
  - RESPIRATORY DISTRESS [None]
  - DRUG WITHDRAWAL SYNDROME [None]
  - DRUG EXPOSURE DURING PREGNANCY [None]
  - HYPOTONIA [None]
